FAERS Safety Report 7471726-0 (Version None)
Quarter: 2011Q1

REPORT INFORMATION
  Report Type: 
  Country: None (occurrence: None)
  Receive Date: 20110302
  Receipt Date: 20101118
  Transmission Date: 20110831
  Serious: Yes (Hospitalization)
  Sender: FDA-Public Use
  Company Number: 163-21880-10110558

PATIENT
  Age: 68 Year
  Sex: Male

DRUGS (4)
  1. MORPHINE [Concomitant]
  2. STEROIDS (CORTICOSTEROID NOS) [Concomitant]
  3. REVLIMID [Suspect]
     Indication: MULTIPLE MYELOMA
     Dosage: 10 MG, 1 IN 1 D, PO, 5 MG, DAILY X 21 DAYS, PO
     Route: 048
     Dates: start: 20101006
  4. REVLIMID [Suspect]
     Indication: MULTIPLE MYELOMA
     Dosage: 10 MG, 1 IN 1 D, PO, 5 MG, DAILY X 21 DAYS, PO
     Route: 048
     Dates: start: 20100101

REACTIONS (7)
  - PNEUMONIA [None]
  - FEBRILE NEUTROPENIA [None]
  - ANAEMIA [None]
  - DRUG INTOLERANCE [None]
  - MULTIPLE MYELOMA [None]
  - THROMBOCYTOPENIA [None]
  - DISEASE PROGRESSION [None]
